FAERS Safety Report 7044908-X (Version None)
Quarter: 2010Q4

REPORT INFORMATION
  Report Type: 
  Country: None (occurrence: None)
  Receive Date: 20101014
  Receipt Date: 20101006
  Transmission Date: 20110411
  Serious: Yes (Other)
  Sender: FDA-Public Use
  Company Number: JP-JNJFOC-20101001011

PATIENT
  Age: 52 Year
  Sex: Male

DRUGS (3)
  1. DUROTEP MT [Suspect]
     Indication: PAIN
     Route: 062
  2. DUROTEP MT [Suspect]
     Route: 062
  3. ACETAMINOPHEN [Concomitant]
     Route: 048

REACTIONS (2)
  - DELIRIUM [None]
  - DRUG PRESCRIBING ERROR [None]
